FAERS Safety Report 14149504 (Version 2)
Quarter: 2018Q1

REPORT INFORMATION
  Report Type: Spontaneous
  Country: IT (occurrence: IT)
  Receive Date: 20171101
  Receipt Date: 20180308
  Transmission Date: 20180508
  Serious: Yes (Other)
  Sender: FDA-Public Use
  Company Number: IT-CELGENEUS-ITA-20171007299

PATIENT
  Age: 65 Year
  Sex: Female
  Weight: 46 kg

DRUGS (3)
  1. GEMZAR [Suspect]
     Active Substance: GEMCITABINE HYDROCHLORIDE
     Indication: PANCREATIC NEOPLASM
     Dosage: 1 VIAL OF 1G
     Route: 041
     Dates: start: 20170614, end: 20171012
  2. ABRAXANE [Suspect]
     Active Substance: PACLITAXEL
     Indication: PANCREATIC NEOPLASM
     Dosage: 5MG/ML/100MG
     Route: 041
     Dates: start: 20171003, end: 20171012
  3. GEMZAR [Suspect]
     Active Substance: GEMCITABINE HYDROCHLORIDE
     Dosage: 1 VIAL OF 1G
     Route: 041
     Dates: start: 201710

REACTIONS (4)
  - Haemoglobin decreased [Unknown]
  - Leukopenia [Unknown]
  - Incontinence [Unknown]
  - Erythropenia [Unknown]

NARRATIVE: CASE EVENT DATE: 20171023
